FAERS Safety Report 6387552-X (Version None)
Quarter: 2009Q4

REPORT INFORMATION
  Report Type: 
  Country: None (occurrence: None)
  Receive Date: 20091005
  Receipt Date: 20090925
  Transmission Date: 20100525
  Serious: Yes (Hospitalization, Other)
  Sender: FDA-Public Use
  Company Number: CA-BAYER-CA-2004-028286

PATIENT
  Age: 35 Year
  Sex: Male

DRUGS (4)
  1. BETASERON [Suspect]
     Indication: RELAPSING-REMITTING MULTIPLE SCLEROSIS
     Dosage: TOTAL DAILY DOSE: 8 MIU
     Route: 058
     Dates: start: 19960401
  2. BACLOFEN [Concomitant]
     Indication: MUSCLE RELAXANT THERAPY
     Route: 048
  3. OXYBUTYNIN CHLORIDE [Concomitant]
     Indication: URINARY INCONTINENCE
     Route: 048
  4. ACETAMINOPHEN [Concomitant]
     Route: 048

REACTIONS (11)
  - CELLULITIS [None]
  - COGNITIVE DISORDER [None]
  - DEHYDRATION [None]
  - DIARRHOEA [None]
  - INJECTION SITE CELLULITIS [None]
  - INJECTION SITE REACTION [None]
  - INJECTION SITE SWELLING [None]
  - JUDGEMENT IMPAIRED [None]
  - MEMORY IMPAIRMENT [None]
  - MYALGIA [None]
  - SECONDARY PROGRESSIVE MULTIPLE SCLEROSIS [None]
